FAERS Safety Report 10760983 (Version 1)
Quarter: 2015Q1

REPORT INFORMATION
  Report Type: Other
  Country: IT (occurrence: IT)
  Receive Date: 20150204
  Receipt Date: 20150204
  Transmission Date: 20150721
  Serious: No
  Sender: FDA-Public Use
  Company Number: IT-LUPIN PHARMACEUTICALS INC.-2014-01857

PATIENT
  Age: 21 Year
  Sex: Female

DRUGS (4)
  1. TOPIRAMATE. [Suspect]
     Active Substance: TOPIRAMATE
     Indication: MIGRAINE
     Dosage: 25MG
     Route: 065
  2. TOPIRAMATE. [Interacting]
     Active Substance: TOPIRAMATE
     Dosage: 50MG
     Route: 065
  3. LEVONORGESTREL AND ETHINYL ESTRADIOL [Interacting]
     Active Substance: ETHINYL ESTRADIOL\LEVONORGESTREL
     Indication: MENSTRUAL DISORDER
  4. LEVONORGESTREL AND ETHINYL ESTRADIOL [Interacting]
     Active Substance: ETHINYL ESTRADIOL\LEVONORGESTREL
     Indication: ACNE
     Route: 065

REACTIONS (3)
  - Ovarian cyst [Unknown]
  - Metrorrhagia [Unknown]
  - Drug interaction [Unknown]
